FAERS Safety Report 7511492-3 (Version None)
Quarter: 2011Q2

REPORT INFORMATION
  Report Type: 
  Country: None (occurrence: None)
  Receive Date: 20110531
  Receipt Date: 20101111
  Transmission Date: 20111010
  Serious: No
  Sender: FDA-Public Use
  Company Number: US-NOVEN-ALL1-2010-05941

PATIENT
  Sex: Male
  Weight: 20.408 kg

DRUGS (1)
  1. DAYTRANA [Suspect]
     Dosage: 20 MG, 1X/DAY:QD (TWO 10 MG PATCHES)
     Route: 062
     Dates: start: 20101018, end: 20101018

REACTIONS (4)
  - APPLICATION SITE BURN [None]
  - APPLICATION SITE ERYTHEMA [None]
  - APPLICATION SITE DRYNESS [None]
  - PRODUCT QUALITY ISSUE [None]
